FAERS Safety Report 15103706 (Version 2)
Quarter: 2018Q4

REPORT INFORMATION
  Report Type: Spontaneous
  Country: TR (occurrence: TR)
  Receive Date: 20180703
  Receipt Date: 20181107
  Transmission Date: 20190204
  Serious: No
  Sender: FDA-Public Use
  Company Number: TR-BAYER-2018-123438

PATIENT
  Age: 25 Year
  Sex: Female
  Weight: 48 kg

DRUGS (1)
  1. AVELOX [Suspect]
     Active Substance: MOXIFLOXACIN HYDROCHLORIDE
     Indication: SINUSITIS
     Dosage: 1 NOT APPL., ONCE
     Route: 048
     Dates: start: 20180619, end: 20180619

REACTIONS (8)
  - Arthralgia [Recovered/Resolved]
  - Nerve compression [Recovered/Resolved]
  - Pyrexia [Recovered/Resolved]
  - Gait inability [Recovered/Resolved]
  - Muscle spasms [Recovered/Resolved]
  - Contusion [Recovered/Resolved]
  - Nausea [Recovered/Resolved]
  - Hypoaesthesia [Recovered/Resolved]

NARRATIVE: CASE EVENT DATE: 20180619
